FAERS Safety Report 17870298 (Version 1)
Quarter: 2020Q2

REPORT INFORMATION
  Report Type: Spontaneous
  Country: US (occurrence: US)
  Receive Date: 20200606
  Receipt Date: 20200606
  Transmission Date: 20200714
  Serious: Yes (Hospitalization, Other)
  Sender: FDA-Public Use
  Company Number: None

PATIENT
  Age: 36 Year
  Sex: Female
  Weight: 85.5 kg

DRUGS (1)
  1. CHLORHEXIDINE [Suspect]
     Active Substance: CHLORHEXIDINE
     Indication: INFECTION PROPHYLAXIS
     Dates: start: 20191104, end: 20191104

REACTIONS (9)
  - Skin exfoliation [None]
  - Incision site pain [None]
  - Incision site impaired healing [None]
  - Skin warm [None]
  - Incision site pruritus [None]
  - Infection [None]
  - Hypersensitivity [None]
  - Erythema [None]
  - Soft tissue necrosis [None]

NARRATIVE: CASE EVENT DATE: 20191104
